FAERS Safety Report 9630489 (Version 3)
Quarter: 2014Q4

REPORT INFORMATION
  Report Type: Spontaneous
  Country: JP (occurrence: JP)
  Receive Date: 20131018
  Receipt Date: 20141001
  Transmission Date: 20150529
  Serious: Yes (Hospitalization, Other)
  Sender: FDA-Public Use
  Company Number: JP-AMGEN-JPNSP2013073280

PATIENT
  Age: 56 Year
  Sex: Female
  Weight: 54 kg

DRUGS (16)
  1. ELIETEN                            /00041902/ [Concomitant]
     Indication: VOMITING
     Dosage: 10 MG, UNK
     Route: 041
     Dates: start: 20130328, end: 20130328
  2. PREDONINE [Concomitant]
     Active Substance: PREDNISOLONE\PREDNISOLONE ACETATE\PREDNISOLONE SODIUM SUCCINATE
     Dosage: 5 MG, QD
     Route: 048
     Dates: start: 20130327
  3. HANP [Concomitant]
     Active Substance: CARPERITIDE
     Indication: CARDIAC FAILURE
     Dosage: 3000 IU, QD
     Route: 065
     Dates: start: 20130327
  4. MUCOSTA [Concomitant]
     Active Substance: REBAMIPIDE
     Dosage: 3 DF, UNK
     Route: 048
     Dates: start: 20130315
  5. MYONAL                             /01071502/ [Concomitant]
     Indication: BACK PAIN
     Dosage: 3 DF, UNK
     Route: 048
     Dates: start: 20130315
  6. DECADRON [Concomitant]
     Active Substance: DEXAMETHASONE
     Indication: PLASMA CELL MYELOMA
     Dosage: 20 MG, QD
     Route: 041
     Dates: start: 20130324, end: 20140327
  7. MYONAL                             /01071502/ [Concomitant]
     Indication: BACK PAIN
  8. CRAVIT [Concomitant]
     Active Substance: LEVOFLOXACIN
     Indication: PNEUMONIA
     Dosage: 500 MG, QD
     Route: 041
     Dates: start: 20130326, end: 20130328
  9. RANMARK [Suspect]
     Active Substance: DENOSUMAB
     Indication: HYPERCALCAEMIA
     Dosage: 120 MG, QD
     Route: 058
     Dates: start: 20130321, end: 20130321
  10. MARZULENE-S [Concomitant]
     Active Substance: SODIUM GUALENATE
     Dosage: 2 G, QD
     Route: 048
     Dates: start: 20130327
  11. BLOSTAR M [Concomitant]
     Dosage: 20 MG, QD
     Route: 048
     Dates: start: 20130325
  12. SOLITA-T1 [Concomitant]
     Dosage: 3 DF, UNK
     Route: 041
     Dates: start: 20130321, end: 20130323
  13. DIART [Concomitant]
     Active Substance: AZOSEMIDE
     Indication: CARDIAC FAILURE
     Dosage: 30 MG, QD
     Route: 048
     Dates: start: 20130326
  14. VELCADE [Concomitant]
     Active Substance: BORTEZOMIB
     Indication: PLASMA CELL MYELOMA
     Dosage: 2 MG, UNK
     Route: 058
     Dates: start: 20130328, end: 20130328
  15. LOXONIN [Concomitant]
     Active Substance: LOXOPROFEN SODIUM
     Indication: BACK PAIN
     Dosage: 3T
     Route: 048
     Dates: start: 20130315, end: 20130321
  16. ZOVIRAX [Concomitant]
     Active Substance: ACYCLOVIR
     Dosage: 200 MG, QD
     Route: 048
     Dates: start: 20130328

REACTIONS (2)
  - Hypocalcaemia [Unknown]
  - Hypocalcaemia [Not Recovered/Not Resolved]

NARRATIVE: CASE EVENT DATE: 20130329
